FAERS Safety Report 5259627-X (Version None)
Quarter: 2007Q1

REPORT INFORMATION
  Report Type: 
  Country: None (occurrence: None)
  Receive Date: 20070307
  Receipt Date: 20070307
  Transmission Date: 20070707
  Serious: Yes (Hospitalization, Other)
  Sender: FDA-Public Use
  Company Number: None

PATIENT
  Age: 54 Year
  Sex: Male
  Weight: 64.4 kg

DRUGS (9)
  1. VANCOMYCIN [Suspect]
     Indication: CELLULITIS
     Dosage: 1250 MG  EVERY 12 HOURS  IV BOLUS
     Route: 040
     Dates: start: 20060813, end: 20060815
  2. VANCOMYCIN [Suspect]
     Indication: CELLULITIS
     Dosage: 750 MG  DAILY  IV BOLUS
     Route: 040
     Dates: start: 20060816, end: 20060818
  3. ENOXAPARIN SODIUM [Concomitant]
  4. PROCHLOROPERAZINE [Concomitant]
  5. FENTANYL [Concomitant]
  6. ONDANSETRON [Concomitant]
  7. PANTOPRAZOLE SODIUM [Concomitant]
  8. VYTORIN [Concomitant]
  9. MORPHINE [Concomitant]

REACTIONS (4)
  - CELLULITIS [None]
  - NEPHRITIS INTERSTITIAL [None]
  - RENAL FAILURE ACUTE [None]
  - RENAL TUBULAR NECROSIS [None]
